FAERS Safety Report 16778495 (Version 1)
Quarter: 2019Q3

REPORT INFORMATION
  Report Type: Spontaneous
  Country: US (occurrence: US)
  Receive Date: 20190906
  Receipt Date: 20190906
  Transmission Date: 20191005
  Serious: No
  Sender: FDA-Public Use
  Company Number: US-UNITED THERAPEUTICS-UNT-2019-012082

PATIENT
  Age: 31 Year
  Sex: Female
  Weight: 130.16 kg

DRUGS (5)
  1. TYVASO [Suspect]
     Active Substance: TREPROSTINIL
     Indication: PULMONARY ARTERIAL HYPERTENSION
     Dosage: 18-54 ?G, QID
     Dates: start: 20190708
  2. DILTIAZEM. [Concomitant]
     Active Substance: DILTIAZEM
     Indication: PRODUCT USED FOR UNKNOWN INDICATION
     Dosage: UNK
     Route: 065
  3. SILDENAFIL CITRATE. [Concomitant]
     Active Substance: SILDENAFIL CITRATE
     Indication: PRODUCT USED FOR UNKNOWN INDICATION
     Dosage: UNK
     Route: 065
  4. TYVASO [Suspect]
     Active Substance: TREPROSTINIL
     Dosage: 18 ?G, UNK
  5. TYVASO [Suspect]
     Active Substance: TREPROSTINIL
     Dosage: UNK

REACTIONS (8)
  - Dizziness [Recovered/Resolved]
  - Malaise [Unknown]
  - Nausea [Recovered/Resolved]
  - Dehydration [Unknown]
  - Flushing [Not Recovered/Not Resolved]
  - Fatigue [Unknown]
  - Diarrhoea [Recovered/Resolved]
  - Vomiting [Recovered/Resolved]

NARRATIVE: CASE EVENT DATE: 201907
